FAERS Safety Report 6539232-5 (Version None)
Quarter: 2010Q1

REPORT INFORMATION
  Report Type: 
  Country: None (occurrence: None)
  Receive Date: 20100112
  Receipt Date: 20091228
  Transmission Date: 20100710
  Serious: No
  Sender: FDA-Public Use
  Company Number: 008330

PATIENT
  Age: 47 Year
  Sex: Male

DRUGS (9)
  1. PLETAL [Suspect]
     Indication: PERIPHERAL ARTERIAL OCCLUSIVE DISEASE
     Dosage: ORAL
     Route: 048
     Dates: start: 20090901
  2. METOPROLOL (METOPROLOL) [Concomitant]
  3. ENALAPRIL MALEATE [Concomitant]
  4. MOXONIDINE (MOXONIDINE) [Concomitant]
  5. AMLODIPINE [Concomitant]
  6. SPIRONOLACTONE [Concomitant]
  7. SIMVASTATIN [Concomitant]
  8. IBUPROFEN [Concomitant]
  9. NIFEDIPINE [Concomitant]

REACTIONS (3)
  - BLOOD CHOLESTEROL INCREASED [None]
  - BLOOD TRIGLYCERIDES INCREASED [None]
  - LIVER FUNCTION TEST ABNORMAL [None]
